FAERS Safety Report 6028792-9 (Version None)
Quarter: 2009Q1

REPORT INFORMATION
  Report Type: 
  Country: None (occurrence: None)
  Receive Date: 20090106
  Receipt Date: 20081229
  Transmission Date: 20090719
  Serious: Yes (Congenital Anomaly)
  Sender: FDA-Public Use
  Company Number: B0552461A

PATIENT
  Sex: Male
  Weight: 3 kg

DRUGS (1)
  1. PAROXETINE HCL [Suspect]
     Indication: DRUG USE FOR UNKNOWN INDICATION
     Dosage: 40MG PER DAY
     Dates: start: 20070101

REACTIONS (2)
  - ARRHYTHMIA NEONATAL [None]
  - DRUG EXPOSURE DURING PREGNANCY [None]
